FAERS Safety Report 5572423-9 (Version None)
Quarter: 2007Q4

REPORT INFORMATION
  Report Type: 
  Country: None (occurrence: None)
  Receive Date: 20071222
  Receipt Date: 20071212
  Transmission Date: 20080405
  Serious: Yes (Hospitalization)
  Sender: FDA-Public Use
  Company Number: JP-PFIZER INC-2007105731

PATIENT
  Age: 58 Year
  Sex: Female

DRUGS (14)
  1. MIGLITOL TABLET [Suspect]
     Indication: DIABETES MELLITUS
     Dosage: DAILY DOSE:150MG
     Route: 048
     Dates: start: 20071201, end: 20071206
  2. PREDONINE [Concomitant]
     Route: 048
  3. NEORAL [Concomitant]
     Route: 048
  4. OMEPRAL [Concomitant]
     Route: 048
  5. STARSIS [Concomitant]
  6. FOSAMAX [Concomitant]
     Route: 048
  7. BAKTAR [Concomitant]
     Route: 048
  8. FUNGIZONE [Concomitant]
     Route: 048
  9. MAGNESIUM OXIDE [Concomitant]
     Route: 048
  10. VANCOMIN [Concomitant]
     Route: 048
  11. FLUVOXAMINE MALEATE [Concomitant]
     Route: 048
  12. GASTROM [Concomitant]
     Route: 048
  13. RIZE [Concomitant]
     Route: 048
  14. RISPERDAL [Concomitant]
     Route: 048

REACTIONS (4)
  - ALANINE AMINOTRANSFERASE INCREASED [None]
  - ASPARTATE AMINOTRANSFERASE INCREASED [None]
  - BLOOD ALKALINE PHOSPHATASE INCREASED [None]
  - GAMMA-GLUTAMYLTRANSFERASE INCREASED [None]
